FAERS Safety Report 11765269 (Version 1)
Quarter: 2015Q4

REPORT INFORMATION
  Report Type: Spontaneous
  Country: US (occurrence: US)
  Receive Date: 20151120
  Receipt Date: 20151120
  Transmission Date: 20160304
  Serious: No
  Sender: FDA-Public Use
  Company Number: US-ELI_LILLY_AND_COMPANY-US201401011051

PATIENT
  Sex: Male

DRUGS (2)
  1. TESTOSTERON                        /00103101/ [Concomitant]
     Active Substance: TESTOSTERONE
  2. FORTEO [Suspect]
     Active Substance: TERIPARATIDE
     Indication: OSTEOPOROSIS
     Dosage: 20 UG, QD
     Route: 065

REACTIONS (10)
  - Flushing [Not Recovered/Not Resolved]
  - Muscle spasms [Unknown]
  - Erythema [Not Recovered/Not Resolved]
  - Blood pressure fluctuation [Unknown]
  - Feeling hot [Unknown]
  - Discomfort [Unknown]
  - Hypotension [Unknown]
  - Hypertension [Unknown]
  - Hypoacusis [Unknown]
  - Headache [Unknown]

NARRATIVE: CASE EVENT DATE: 201401
